FAERS Safety Report 9069614 (Version 1)
Quarter: 2013Q1

REPORT INFORMATION
  Report Type: Spontaneous
  Country: ES (occurrence: ES)
  Receive Date: 20130215
  Receipt Date: 20130215
  Transmission Date: 20140127
  Serious: Yes (Hospitalization)
  Sender: FDA-Public Use
  Company Number: ES-ACTELION-A-CH2013-79028

PATIENT
  Sex: Female

DRUGS (4)
  1. TRACLEER [Suspect]
     Indication: PULMONARY ARTERIAL HYPERTENSION
     Dosage: 125 MG, BID
     Route: 048
  2. TRACLEER [Suspect]
     Dosage: 62.5 MG, BID
     Route: 048
  3. TRACLEER [Suspect]
     Dosage: 62.5 MG, BID
     Route: 048
  4. PROGRAF [Suspect]

REACTIONS (8)
  - Cardiac failure [Recovering/Resolving]
  - Drug interaction [Not Recovered/Not Resolved]
  - Drug level decreased [Not Recovered/Not Resolved]
  - Drug level increased [Not Recovered/Not Resolved]
  - Oedema [Recovering/Resolving]
  - Dyspnoea [Recovering/Resolving]
  - Kidney transplant rejection [Recovering/Resolving]
  - Blood creatinine increased [Recovering/Resolving]
